FAERS Safety Report 14393377 (Version 1)
Quarter: 2018Q1

REPORT INFORMATION
  Report Type: Spontaneous
  Country: US (occurrence: US)
  Receive Date: 20180114
  Receipt Date: 20180114
  Transmission Date: 20180509
  Serious: Yes (Hospitalization)
  Sender: FDA-Public Use
  Company Number: None

PATIENT
  Age: 42 Year
  Sex: Female
  Weight: 67.5 kg

DRUGS (2)
  1. CLONAZEPAM. [Suspect]
     Active Substance: CLONAZEPAM
     Indication: ANXIETY
     Dosage: ?          QUANTITY:90 TABLET(S);?
     Dates: start: 20170130, end: 20170830
  2. CLONAZEPAM. [Suspect]
     Active Substance: CLONAZEPAM
     Indication: TARDIVE DYSKINESIA
     Dosage: ?          QUANTITY:90 TABLET(S);?
     Dates: start: 20170130, end: 20170830

REACTIONS (5)
  - Drug level changed [None]
  - Withdrawal syndrome [None]
  - Product quality issue [None]
  - Hallucination [None]
  - Product substitution issue [None]

NARRATIVE: CASE EVENT DATE: 20170728
